FAERS Safety Report 5532076-2 (Version None)
Quarter: 2007Q4

REPORT INFORMATION
  Report Type: 
  Country: None (occurrence: None)
  Receive Date: 20071203
  Receipt Date: 20071128
  Transmission Date: 20080405
  Serious: Yes (Hospitalization)
  Sender: FDA-Public Use
  Company Number: B0497535A

PATIENT
  Age: 44 Year
  Sex: Female

DRUGS (7)
  1. TRACRIUM [Suspect]
     Dosage: 30MG SINGLE DOSE
     Route: 042
     Dates: start: 20070806, end: 20070806
  2. VENTOLIN [Suspect]
     Indication: DRUG USE FOR UNKNOWN INDICATION
     Dosage: 2UNIT SINGLE DOSE
     Route: 065
     Dates: start: 20070806, end: 20070806
  3. VANCOMYCIN [Suspect]
     Indication: DRUG USE FOR UNKNOWN INDICATION
     Dosage: 1G SINGLE DOSE
     Route: 042
     Dates: start: 20070806, end: 20070806
  4. DESFLURANE [Suspect]
     Indication: DRUG USE FOR UNKNOWN INDICATION
     Route: 065
     Dates: start: 20070806, end: 20070806
  5. SUFENTA [Concomitant]
     Dosage: 30MCG SINGLE DOSE
     Route: 042
     Dates: start: 20070806, end: 20070806
  6. PROPOFOL [Concomitant]
     Dosage: 150MG SINGLE DOSE
     Route: 042
     Dates: start: 20070806, end: 20070806
  7. SPASMINE [Concomitant]

REACTIONS (2)
  - ABDOMINAL PAIN [None]
  - PANCREATITIS ACUTE [None]
